FAERS Safety Report 5614888-X (Version None)
Quarter: 2008Q1

REPORT INFORMATION
  Report Type: 
  Country: None (occurrence: None)
  Receive Date: 20080131
  Receipt Date: 20080115
  Transmission Date: 20080703
  Serious: Yes (Other)
  Sender: FDA-Public Use
  Company Number: 2008VX000194

PATIENT
  Age: 43 Year
  Sex: Male
  Weight: 86 kg

DRUGS (2)
  1. CARBOLITH (LITHIUM CARBONATE) [Suspect]
     Dosage: 900 MG;QD;PO
     Route: 048
  2. SEROQUEL [Suspect]
     Dosage: 150 MG;QD;PO
     Route: 048

REACTIONS (2)
  - RASH ERYTHEMATOUS [None]
  - SKIN EXFOLIATION [None]
